FAERS Safety Report 4443586-3 (Version None)
Quarter: 2004Q3

REPORT INFORMATION
  Report Type: 
  Country: None (occurrence: None)
  Receive Date: 20040830
  Receipt Date: 20040818
  Transmission Date: 20050211
  Serious: Yes (Other)
  Sender: FDA-Public Use
  Company Number: WAES 0405USA01660

PATIENT
  Age: 31 Month
  Sex: 0

DRUGS (2)
  1. COSMEGEN [Suspect]
     Indication: RHABDOMYOSARCOMA
  2. CYCLOPHOSPHAMIDE [Suspect]
     Indication: RHABDOMYOSARCOMA

REACTIONS (3)
  - ASCITES [None]
  - LIVER DISORDER [None]
  - VENOOCCLUSIVE DISEASE [None]
